FAERS Safety Report 5395625-3 (Version None)
Quarter: 2007Q3

REPORT INFORMATION
  Report Type: 
  Country: None (occurrence: None)
  Receive Date: 20070720
  Receipt Date: 20070716
  Transmission Date: 20080115
  Serious: Yes (Life-Threatening, Hospitalization)
  Sender: FDA-Public Use
  Company Number: 2007-161318-NL

PATIENT
  Age: 45 Year
  Sex: Male

DRUGS (6)
  1. MIRTAZAPINE [Suspect]
     Dosage: 225 MG ONCE ORAL
     Route: 048
  2. BACLOFEN [Suspect]
     Dosage: 200 MG ONCE ORAL
     Route: 048
  3. VECURONIUM BROMIDE [Concomitant]
  4. SUCCINYLCHOLINE CHLORIDE [Concomitant]
  5. PROPOFOL [Concomitant]
  6. MIDAZOLAM [Concomitant]

REACTIONS (10)
  - AREFLEXIA [None]
  - BLOOD BILIRUBIN ABNORMAL [None]
  - BLOOD CREATINE PHOSPHOKINASE INCREASED [None]
  - INTENTIONAL OVERDOSE [None]
  - PLATELET COUNT DECREASED [None]
  - SUICIDE ATTEMPT [None]
  - THERAPEUTIC AGENT TOXICITY [None]
  - UNRESPONSIVE TO STIMULI [None]
  - VESTIBULAR DISORDER [None]
  - WHITE BLOOD CELL COUNT INCREASED [None]
